FAERS Safety Report 18839204 (Version 12)
Quarter: 2024Q4

REPORT INFORMATION
  Report Type: Spontaneous
  Country: US (occurrence: US)
  Receive Date: 20210203
  Receipt Date: 20241121
  Transmission Date: 20250114
  Serious: Yes (Hospitalization, Other)
  Sender: PFIZER
  Company Number: US-PFIZER INC-2021090314

PATIENT
  Age: 82 Year
  Sex: Male
  Weight: 72.57 kg

DRUGS (6)
  1. LORBRENA [Suspect]
     Active Substance: LORLATINIB
     Indication: Lung neoplasm malignant
     Dosage: 100 MG
  2. LORBRENA [Suspect]
     Active Substance: LORLATINIB
     Dosage: 25 MG
  3. LORBRENA [Suspect]
     Active Substance: LORLATINIB
     Dosage: TAKE ONE 25 MG TAB 3 TIMES A DAY
     Route: 048
  4. LORBRENA [Suspect]
     Active Substance: LORLATINIB
     Dosage: 3 TABS
     Route: 048
  5. LORBRENA [Suspect]
     Active Substance: LORLATINIB
     Dosage: 25 MG, DAILY
     Route: 048
  6. LORBRENA [Suspect]
     Active Substance: LORLATINIB
     Dosage: 75 MG, 1X/DAY, TAKE 3 TABS ONCE A DAY
     Route: 048

REACTIONS (5)
  - Knee arthroplasty [Unknown]
  - Post procedural infection [Unknown]
  - Off label use [Unknown]
  - Muscular weakness [Unknown]
  - Balance disorder [Unknown]

NARRATIVE: CASE EVENT DATE: 20210907
